FAERS Safety Report 5724326-4 (Version None)
Quarter: 2008Q2

REPORT INFORMATION
  Report Type: 
  Country: None (occurrence: None)
  Receive Date: 20080430
  Receipt Date: 20080422
  Transmission Date: 20081010
  Serious: Yes (Other)
  Sender: FDA-Public Use
  Company Number: FR-PFIZER INC-2008017744

PATIENT
  Sex: Female
  Weight: 51 kg

DRUGS (5)
  1. SUTENT [Suspect]
     Indication: METASTATIC MALIGNANT MELANOMA
     Route: 048
  2. MELPHALAN [Concomitant]
  3. OMEPRAZOLE [Concomitant]
     Indication: OESOPHAGITIS
     Route: 048
  4. DOMPERIDONE [Concomitant]
     Indication: NAUSEA
     Dosage: TEXT:4 TABLETS PER DAY
     Route: 048
  5. ZOLOFT [Concomitant]
     Indication: DEPRESSION
     Route: 048

REACTIONS (7)
  - ANAEMIA [None]
  - BURNING SENSATION [None]
  - LEUKOPENIA [None]
  - NEUTROPENIA [None]
  - PERIARTHRITIS [None]
  - STOMATITIS [None]
  - THROMBOCYTOPENIA [None]
